FAERS Safety Report 7344084-X (Version None)
Quarter: 2011Q1

REPORT INFORMATION
  Report Type: 
  Country: None (occurrence: None)
  Receive Date: 20110310
  Receipt Date: 20100601
  Transmission Date: 20110831
  Serious: No
  Sender: FDA-Public Use
  Company Number: A0862954A

PATIENT
  Age: 37 Year
  Sex: Male

DRUGS (1)
  1. NICORETTE (MINT) [Suspect]

REACTIONS (1)
  - DRUG INEFFECTIVE [None]
